FAERS Safety Report 14956746 (Version 2)
Quarter: 2018Q2

REPORT INFORMATION
  Report Type: Spontaneous
  Country: CN (occurrence: CN)
  Receive Date: 20180531
  Receipt Date: 20180601
  Transmission Date: 20180711
  Serious: Yes (Other)
  Sender: FDA-Public Use
  Company Number: CN-009507513-1805CHN012695

PATIENT
  Age: 84 Year
  Sex: Male
  Weight: 58 kg

DRUGS (2)
  1. SODIUM CHLORIDE. [Suspect]
     Active Substance: SODIUM CHLORIDE
     Dosage: 100 ML, TID
     Route: 041
     Dates: start: 20180204, end: 20180206
  2. TIENAM [Suspect]
     Active Substance: CILASTATIN SODIUM\IMIPENEM
     Indication: LUNG INFECTION
     Dosage: 1 G, TID
     Route: 041
     Dates: start: 20180204, end: 20180206

REACTIONS (2)
  - Speech disorder [Recovering/Resolving]
  - Irritability [Recovering/Resolving]

NARRATIVE: CASE EVENT DATE: 20180204
